FAERS Safety Report 24309672 (Version 1)
Quarter: 2024Q3

REPORT INFORMATION
  Report Type: Spontaneous
  Country: IT (occurrence: IT)
  Receive Date: 20240912
  Receipt Date: 20240912
  Transmission Date: 20241017
  Serious: Yes (Other)
  Sender: RANBAXY
  Company Number: IT-SUN PHARMACEUTICAL INDUSTRIES LTD-2024R1-467137

PATIENT

DRUGS (1)
  1. FLUVOXAMINE [Suspect]
     Active Substance: FLUVOXAMINE
     Indication: Major depression
     Dosage: 300 MILLIGRAM, DAILY
     Route: 065

REACTIONS (2)
  - Therapy non-responder [Unknown]
  - Akathisia [Unknown]
